FAERS Safety Report 9548281 (Version 1)
Quarter: 2013Q3

REPORT INFORMATION
  Report Type: Spontaneous
  Country: CA (occurrence: CA)
  Receive Date: 20130924
  Receipt Date: 20130924
  Transmission Date: 20140515
  Serious: Yes (Other)
  Sender: FDA-Public Use
  Company Number: CA-ROCHE-1278600

PATIENT
  Sex: Female

DRUGS (4)
  1. HERCEPTIN [Suspect]
     Indication: BREAST CANCER
     Route: 042
     Dates: start: 201202, end: 201308
  2. DOCETAXOL [Suspect]
     Indication: BREAST CANCER
     Route: 042
     Dates: start: 201202, end: 201208
  3. MARIJUANA [Concomitant]
  4. DEXAMETHASONE [Concomitant]

REACTIONS (2)
  - Oophorectomy bilateral [Unknown]
  - Alopecia [Recovering/Resolving]
